FAERS Safety Report 6568913-2 (Version None)
Quarter: 2010Q1

REPORT INFORMATION
  Report Type: 
  Country: None (occurrence: None)
  Receive Date: 20100201
  Receipt Date: 20100201
  Transmission Date: 20100710
  Serious: Yes (Other)
  Sender: FDA-Public Use
  Company Number: None

PATIENT
  Sex: Female
  Weight: 68.9467 kg

DRUGS (3)
  1. PROMETRIUM [Suspect]
     Indication: UTERINE LEIOMYOMA
     Dosage: 1 PILL ONCE DAILY
     Dates: start: 20090603, end: 20090724
  2. PROMETRIUM [Suspect]
     Indication: UTERINE LEIOMYOMA
     Dosage: 1 PILL ONCE DAILY
     Dates: start: 20090831, end: 20090915
  3. DNA [Concomitant]

REACTIONS (2)
  - HAEMORRHAGE [None]
  - METRORRHAGIA [None]
